FAERS Safety Report 8365419-5 (Version None)
Quarter: 2012Q2

REPORT INFORMATION
  Report Type: 
  Country: None (occurrence: None)
  Receive Date: 20120516
  Receipt Date: 20120504
  Transmission Date: 20120825
  Serious: Yes (Death)
  Sender: FDA-Public Use
  Company Number: US-ROCHE-1031060

PATIENT
  Sex: Female

DRUGS (5)
  1. ZELBORAF [Suspect]
     Indication: MALIGNANT MELANOMA
     Dosage: UNKNOWN
     Route: 048
     Dates: start: 20111001, end: 20120219
  2. THIORIDAZINE HCL [Concomitant]
     Indication: SCHIZOPHRENIA
  3. SYNTHROID [Concomitant]
     Indication: HYPOTHYROIDISM
  4. FEMARA [Concomitant]
  5. DEPAKOTE [Concomitant]
     Indication: BIPOLAR I DISORDER
     Dosage: DOSE:750

REACTIONS (6)
  - OEDEMA [None]
  - DEATH [None]
  - FALL [None]
  - DIARRHOEA [None]
  - URINARY INCONTINENCE [None]
  - ASTHENIA [None]
